FAERS Safety Report 9093096 (Version 2)
Quarter: 2013Q1

REPORT INFORMATION
  Report Type: Spontaneous
  Country: NO (occurrence: NO)
  Receive Date: 20130201
  Receipt Date: 20130314
  Transmission Date: 20140127
  Serious: Yes (Other)
  Sender: FDA-Public Use
  Company Number: NO-PFIZER INC-2013037736

PATIENT
  Sex: 0

DRUGS (3)
  1. CALCIUM FOLINATE [Suspect]
  2. FLUOROURACIL [Suspect]
  3. OXALIPLATIN [Suspect]

REACTIONS (1)
  - Pyrexia [Unknown]
